FAERS Safety Report 7814071-3 (Version None)
Quarter: 2011Q4

REPORT INFORMATION
  Report Type: 
  Country: None (occurrence: None)
  Receive Date: 20111014
  Receipt Date: 20111005
  Transmission Date: 20120403
  Serious: Yes (Hospitalization, Other)
  Sender: FDA-Public Use
  Company Number: US-US-EMD SERONO, INC.-7087980

PATIENT
  Sex: Male
  Weight: 111 kg

DRUGS (3)
  1. SOLU-MEDROL [Concomitant]
  2. REBIF [Suspect]
     Indication: MULTIPLE SCLEROSIS
     Route: 058
     Dates: start: 20060410
  3. BACLOFEN [Concomitant]
     Indication: MUSCLE SPASMS

REACTIONS (3)
  - MENISCUS OPERATION [None]
  - CHOLELITHIASIS [None]
  - INJECTION SITE DISCOMFORT [None]
